FAERS Safety Report 7328547-9 (Version None)
Quarter: 2011Q1

REPORT INFORMATION
  Report Type: 
  Country: None (occurrence: None)
  Receive Date: 20110218
  Receipt Date: 20110204
  Transmission Date: 20110831
  Serious: Yes (Hospitalization)
  Sender: FDA-Public Use
  Company Number: 1000018815

PATIENT
  Age: 86 Year
  Sex: Male

DRUGS (5)
  1. KARDEGIC (ACETYLSALICYLATE LYSINE) (POWDER) (ACETYLSALICYLATE LYSINE) [Concomitant]
  2. MODOPAR (LEVODOPA, BENSERAZIDE) (CAPSULES) (LEVODOPA, BENSERAZIDE) [Concomitant]
  3. ESCITALOPRAM OXALATE [Suspect]
     Dosage: 10 MG (10 MG, 1 IN 1 D), ORAL
     Route: 048
     Dates: start: 20100701, end: 20100922
  4. ATORVASTATIN CALCIUM [Suspect]
     Dosage: 10 MG (10 MG, 1 IN 1 D)
     Dates: start: 20100701, end: 20100922
  5. SERESTA (OXAZPEAM) (TABLETS) (OXAZEPAM) [Concomitant]

REACTIONS (10)
  - EOSINOPHILIA [None]
  - HYPERSENSITIVITY [None]
  - PRURITUS [None]
  - THROMBOCYTOPENIA [None]
  - PYREXIA [None]
  - MALAISE [None]
  - POLLAKIURIA [None]
  - OEDEMA PERIPHERAL [None]
  - PSEUDOMONAS INFECTION [None]
  - PRURIGO [None]
